FAERS Safety Report 24393222 (Version 1)
Quarter: 2024Q4

REPORT INFORMATION
  Report Type: Spontaneous
  Country: US (occurrence: None)
  Receive Date: 20241003
  Receipt Date: 20241003
  Transmission Date: 20250114
  Serious: Yes (Life-Threatening, Hospitalization, Disabling, Other)
  Sender: Public
  Company Number: None

PATIENT
  Sex: Female
  Weight: 56.25 kg

DRUGS (13)
  1. GADOLINIUM [Suspect]
     Active Substance: GADOLINIUM
     Indication: X-ray with contrast
     Route: 042
  2. DILTIAZEM [Concomitant]
  3. HYDROCHLOROTHIAZIDE [Concomitant]
  4. Aspirin [Concomitant]
  5. NITROGLYCERIN [Concomitant]
  6. ADDERALL [Concomitant]
     Active Substance: AMPHETAMINE ASPARTATE\AMPHETAMINE SULFATE\DEXTROAMPHETAMINE SACCHARATE\DEXTROAMPHETAMINE SULFATE
  7. ALPRAZOLAM [Concomitant]
  8. SYMBICORT [Concomitant]
  9. MAGNESIUM [Concomitant]
  10. Vit D3 w/ K2 [Concomitant]
  11. L-Glutmine [Concomitant]
  12. Quercetin Ascorbate + Vit C [Concomitant]
  13. Ligaplex TRU Niagen [Concomitant]

REACTIONS (19)
  - Blood lead increased [None]
  - Drug level increased [None]
  - Contrast media reaction [None]
  - Impaired quality of life [None]
  - Headache [None]
  - Thrombosis [None]
  - Vasospasm [None]
  - Myocardial infarction [None]
  - Blood pressure increased [None]
  - Cognitive disorder [None]
  - Insomnia [None]
  - Arthralgia [None]
  - Inflammation [None]
  - Ophthalmic migraine [None]
  - Hypersensitivity [None]
  - Lung disorder [None]
  - Hypoaesthesia [None]
  - Gait disturbance [None]
  - Occupational exposure to product [None]
